FAERS Safety Report 4800224-5 (Version None)
Quarter: 2005Q4

REPORT INFORMATION
  Report Type: 
  Country: None (occurrence: None)
  Receive Date: 20051017
  Receipt Date: 20041122
  Transmission Date: 20060501
  Serious: No
  Sender: FDA-Public Use
  Company Number: US-GLAXOSMITHKLINE-A0534845A

PATIENT
  Sex: Male

DRUGS (5)
  1. CEFTIN [Suspect]
     Dosage: 500MG TWICE PER DAY
     Route: 048
  2. CARBAMAZEPINE [Concomitant]
  3. PENTASA [Concomitant]
  4. COLCHICINE [Concomitant]
  5. CENTRUM [Concomitant]

REACTIONS (2)
  - CONDITION AGGRAVATED [None]
  - WEIGHT DECREASED [None]
